FAERS Safety Report 5309078-4 (Version None)
Quarter: 2007Q2

REPORT INFORMATION
  Report Type: 
  Country: None (occurrence: None)
  Receive Date: 20070426
  Receipt Date: 20070419
  Transmission Date: 20071010
  Serious: Yes (Hospitalization, Other)
  Sender: FDA-Public Use
  Company Number: US-MERCK-0601USA02836

PATIENT
  Age: 62 Year
  Sex: Female

DRUGS (1)
  1. FOSAMAX [Suspect]
     Route: 048

REACTIONS (6)
  - BLOOD CULTURE POSITIVE [None]
  - BREAST CANCER RECURRENT [None]
  - DEPRESSION [None]
  - INTERVERTEBRAL DISCITIS [None]
  - OSTEOMYELITIS [None]
  - OSTEONECROSIS [None]
